FAERS Safety Report 5694924-5 (Version None)
Quarter: 2008Q2

REPORT INFORMATION
  Report Type: 
  Country: None (occurrence: None)
  Receive Date: 20080404
  Receipt Date: 20080324
  Transmission Date: 20081010
  Serious: Yes (Other)
  Sender: FDA-Public Use
  Company Number: GB-ROCHE-556044

PATIENT
  Age: 55 Year
  Sex: Male

DRUGS (5)
  1. RIBAVIRIN [Suspect]
     Route: 065
  2. PEG-INTERFERON ALFA NOS [Suspect]
     Route: 065
  3. METFORMIN HCL [Concomitant]
     Indication: DIABETES MELLITUS
  4. INSULINE [Concomitant]
     Indication: DIABETES MELLITUS
     Dosage: DRUG REPORTED AS MIXED INSULINE.
  5. INSULINE [Concomitant]
     Dosage: DOSE DECREASED.

REACTIONS (3)
  - GLYCOSYLATED HAEMOGLOBIN DECREASED [None]
  - HAEMOLYSIS [None]
  - HYPOGLYCAEMIA [None]
